FAERS Safety Report 9265878 (Version 1)
Quarter: 2013Q2

REPORT INFORMATION
  Report Type: Spontaneous
  Country: US (occurrence: US)
  Receive Date: 20130501
  Receipt Date: 20130501
  Transmission Date: 20140414
  Serious: No
  Sender: FDA-Public Use
  Company Number: US-BAYER-2013-053308

PATIENT
  Age: 56 Year
  Sex: Female
  Weight: 72.11 kg

DRUGS (3)
  1. GADAVIST [Suspect]
     Indication: NUCLEAR MAGNETIC RESONANCE IMAGING BRAIN
     Dosage: 7 ML, ONCE
     Route: 042
     Dates: start: 20130425, end: 20130425
  2. LAMOTRIGIN [Concomitant]
  3. ZONISAMIDE [Concomitant]

REACTIONS (3)
  - Urticaria [Not Recovered/Not Resolved]
  - Pruritus [Recovered/Resolved]
  - Erythema [Recovered/Resolved]
